FAERS Safety Report 24325179 (Version 1)
Quarter: 2024Q3

REPORT INFORMATION
  Report Type: Spontaneous
  Country: AU (occurrence: AU)
  Receive Date: 20240916
  Receipt Date: 20240916
  Transmission Date: 20241016
  Serious: Yes (Life-Threatening, Hospitalization)
  Sender: NOVARTIS
  Company Number: AU-002147023-NVSC2024AU184010

PATIENT
  Age: 15 Year

DRUGS (1)
  1. CARBAMAZEPINE [Suspect]
     Active Substance: CARBAMAZEPINE
     Indication: Epilepsy
     Dosage: 89 MG/KG
     Route: 065

REACTIONS (2)
  - Toxicity to various agents [Recovering/Resolving]
  - Overdose [Recovering/Resolving]
